FAERS Safety Report 13139458 (Version 1)
Quarter: 2017Q1

REPORT INFORMATION
  Report Type: Spontaneous
  Country: US (occurrence: US)
  Receive Date: 20170123
  Receipt Date: 20170123
  Transmission Date: 20170428
  Serious: Yes (Other)
  Sender: FDA-Public Use
  Company Number: US-VALIDUS PHARMACEUTICALS LLC-US-2017VAL000066

PATIENT
  Age: 25 Year
  Sex: Female

DRUGS (4)
  1. PARLODEL [Suspect]
     Active Substance: BROMOCRIPTINE MESYLATE
     Indication: LACTATION INHIBITION THERAPY
     Dosage: 2.5 MG, BID
     Route: 065
  2. NIFEDIPINE. [Concomitant]
     Active Substance: NIFEDIPINE
     Indication: PRODUCT USED FOR UNKNOWN INDICATION
     Dosage: UNK
  3. NITROGLYCERINE [Concomitant]
     Active Substance: NITROGLYCERIN
     Indication: PRODUCT USED FOR UNKNOWN INDICATION
     Dosage: UNK
  4. NITROPRUSSIDE [Concomitant]
     Active Substance: NITROPRUSSIDE
     Indication: PRODUCT USED FOR UNKNOWN INDICATION
     Dosage: UNK

REACTIONS (5)
  - Cerebrovascular accident [Unknown]
  - Hyperthyroidism [Unknown]
  - Paralysis [Recovered/Resolved]
  - Hypertension [Unknown]
  - Quadriparesis [Recovered/Resolved]
